FAERS Safety Report 9289445 (Version 2)
Quarter: 2013Q3

REPORT INFORMATION
  Report Type: Spontaneous
  Country: US (occurrence: US)
  Receive Date: 20130514
  Receipt Date: 20130701
  Transmission Date: 20140515
  Serious: No
  Sender: FDA-Public Use
  Company Number: US-PFIZER INC-2013144953

PATIENT
  Age: 56 Year
  Sex: Female
  Weight: 81.63 kg

DRUGS (2)
  1. LEVOXYL [Suspect]
     Indication: HYPOTHYROIDISM
     Dosage: UNK, TO A HIGHER DOSE
  2. LEVOXYL [Suspect]
     Dosage: 100 UG, 1X/DAY

REACTIONS (4)
  - Hypertension [Not Recovered/Not Resolved]
  - Weight increased [Not Recovered/Not Resolved]
  - Thyroid function test abnormal [Unknown]
  - Temperature intolerance [Unknown]
